FAERS Safety Report 7760602-1 (Version None)
Quarter: 2011Q3

REPORT INFORMATION
  Report Type: 
  Country: None (occurrence: None)
  Receive Date: 20110919
  Receipt Date: 20110916
  Transmission Date: 20111222
  Serious: Yes (Death)
  Sender: FDA-Public Use
  Company Number: KR-BAYER-2011-084002

PATIENT
  Age: 34 Year
  Sex: Female

DRUGS (1)
  1. ULTRAVIST 150 [Suspect]
     Indication: COMPUTERISED TOMOGRAM THORAX
     Dosage: DAILY DOSE 100 ML
     Dates: start: 20110909, end: 20110909

REACTIONS (3)
  - ANAPHYLACTIC SHOCK [None]
  - SEIZURE LIKE PHENOMENA [None]
  - FOAMING AT MOUTH [None]
